FAERS Safety Report 24103622 (Version 3)
Quarter: 2025Q1

REPORT INFORMATION
  Report Type: Spontaneous
  Country: JP (occurrence: JP)
  Receive Date: 20240717
  Receipt Date: 20250107
  Transmission Date: 20250408
  Serious: Yes (Death, Hospitalization, Other)
  Sender: Phathom Pharmaceuticals
  Company Number: JP-PHATHOM PHARMACEUTICALS INC.-2024PHT00549

PATIENT
  Age: 94 Year
  Sex: Female
  Weight: 39.3 kg

DRUGS (8)
  1. VONOPRAZAN FUMARATE [Suspect]
     Active Substance: VONOPRAZAN FUMARATE
     Indication: Product used for unknown indication
     Route: 065
  2. ASPIRIN\VONOPRAZAN FUMARATE [Suspect]
     Active Substance: ASPIRIN\VONOPRAZAN FUMARATE
     Indication: Product used for unknown indication
     Route: 048
     Dates: start: 20220812, end: 20231007
  3. ASPIRIN [Concomitant]
     Active Substance: ASPIRIN
  4. AMLODIPINE BESYLATE [Concomitant]
     Active Substance: AMLODIPINE BESYLATE
     Dates: start: 20220812
  5. CANDESARTAN CILEXETIL [Concomitant]
     Active Substance: CANDESARTAN CILEXETIL
     Dates: start: 20220812, end: 20231007
  6. AMITIZA [Concomitant]
     Active Substance: LUBIPROSTONE
     Dates: start: 20220812
  7. MAGNESIUM OXIDE [Concomitant]
     Active Substance: MAGNESIUM OXIDE
     Dates: start: 20220812, end: 20231007
  8. SODIUM FERROUS CITRATE [Concomitant]
     Active Substance: SODIUM FERROUS CITRATE
     Dates: start: 20220812, end: 20231007

REACTIONS (5)
  - Anaemia macrocytic [Recovered/Resolved]
  - Gastric antral vascular ectasia [Unknown]
  - Cardiac failure congestive [Unknown]
  - Cerebral infarction [Unknown]
  - Death [Fatal]

NARRATIVE: CASE EVENT DATE: 20231004
